FAERS Safety Report 21434805 (Version 1)
Quarter: 2022Q4

REPORT INFORMATION
  Report Type: Report from Study
  Country: US (occurrence: US)
  Receive Date: 20221010
  Receipt Date: 20221010
  Transmission Date: 20230113
  Serious: No
  Sender: FDA-Public Use
  Company Number: US-ABBVIE-4139790

PATIENT
  Sex: Male

DRUGS (5)
  1. SKYRIZI [Suspect]
     Active Substance: RISANKIZUMAB-RZAA
     Indication: Psoriasis
     Route: 058
  2. SKYRIZI [Suspect]
     Active Substance: RISANKIZUMAB-RZAA
     Indication: Psoriatic arthropathy
  3. Moderna [Concomitant]
     Indication: Product used for unknown indication
     Dosage: 1ST DOSE
     Route: 030
     Dates: start: 20210206, end: 20210206
  4. Moderna [Concomitant]
     Indication: Product used for unknown indication
     Dosage: 2ND DOSE
     Dates: start: 20210313, end: 20210313
  5. Moderna [Concomitant]
     Indication: Product used for unknown indication
     Dosage: 3RD DOSE
     Dates: start: 20211111, end: 20211111

REACTIONS (1)
  - Pruritus [Not Recovered/Not Resolved]
